FAERS Safety Report 4482109-X (Version None)
Quarter: 2004Q4

REPORT INFORMATION
  Report Type: 
  Country: None (occurrence: None)
  Receive Date: 20041020
  Receipt Date: 20040930
  Transmission Date: 20050328
  Serious: Yes (Other)
  Sender: FDA-Public Use
  Company Number: US_0408104611

PATIENT
  Age: 69 Year
  Sex: Female
  Weight: 98 kg

DRUGS (4)
  1. HUMATROPE [Suspect]
     Indication: HYPOPITUITARISM
     Dosage: 0.2 MG/1 DAY
     Dates: start: 20040514
  2. SYNTHROID [Concomitant]
  3. HYDROCORTISONE [Concomitant]
  4. DDAVP [Concomitant]

REACTIONS (1)
  - HYPERHIDROSIS [None]
